FAERS Safety Report 4301940-4 (Version None)
Quarter: 2004Q1

REPORT INFORMATION
  Report Type: 
  Country: None (occurrence: None)
  Receive Date: 20040220
  Receipt Date: 20040203
  Transmission Date: 20041129
  Serious: Yes (Life-Threatening)
  Sender: FDA-Public Use
  Company Number: S04-CAN-00656-01

PATIENT
  Age: 38 Year
  Sex: Female
  Weight: 62.5964 kg

DRUGS (2)
  1. TIAZAC [Suspect]
     Indication: MIGRAINE PROPHYLAXIS
     Dosage: 180 MG QD
     Dates: start: 20031025, end: 20031105
  2. TEMAZEPAM [Concomitant]

REACTIONS (8)
  - ERYTHEMA MULTIFORME [None]
  - FATIGUE [None]
  - LOCAL SWELLING [None]
  - LYMPHADENOPATHY [None]
  - MYALGIA [None]
  - NEUTROPHIL COUNT INCREASED [None]
  - THROAT TIGHTNESS [None]
  - TONGUE GEOGRAPHIC [None]
